FAERS Safety Report 6375641-5 (Version None)
Quarter: 2009Q3

REPORT INFORMATION
  Report Type: 
  Country: None (occurrence: None)
  Receive Date: 20090924
  Receipt Date: 20090914
  Transmission Date: 20100115
  Serious: Yes (Hospitalization, Other)
  Sender: FDA-Public Use
  Company Number: US-ELI_LILLY_AND_COMPANY-US200908005008

PATIENT
  Age: 63 Year
  Sex: Male

DRUGS (7)
  1. ALIMTA [Suspect]
     Indication: NON-SMALL CELL LUNG CANCER RECURRENT
     Dosage: UNK, UNK
     Dates: start: 20090201, end: 20090501
  2. ALIMTA [Suspect]
     Dates: start: 20090701
  3. AVASTIN [Concomitant]
     Indication: NON-SMALL CELL LUNG CANCER RECURRENT
     Dates: start: 20090201, end: 20090501
  4. NEULASTA [Concomitant]
     Dates: start: 20090201, end: 20090501
  5. VITAMIN B-12 [Concomitant]
  6. FOLIC ACID [Concomitant]
  7. CORTICOSTEROID NOS [Concomitant]

REACTIONS (5)
  - BACK PAIN [None]
  - HEADACHE [None]
  - HYDRONEPHROSIS [None]
  - MALIGNANT NEOPLASM PROGRESSION [None]
  - PYREXIA [None]
